FAERS Safety Report 24224381 (Version 3)
Quarter: 2024Q3

REPORT INFORMATION
  Report Type: Spontaneous
  Country: US (occurrence: US)
  Receive Date: 20240819
  Receipt Date: 20240913
  Transmission Date: 20241017
  Serious: Yes (Other)
  Sender: BAYER
  Company Number: US-BAYER-2024A116740

PATIENT
  Age: 19 Year
  Sex: Female
  Weight: 72.562 kg

DRUGS (1)
  1. MIRENA [Suspect]
     Active Substance: LEVONORGESTREL
     Indication: Intrauterine contraception
     Dosage: 20?G/DAY
     Route: 015
     Dates: start: 20210804, end: 20221230

REACTIONS (4)
  - Coeliac disease [Not Recovered/Not Resolved]
  - Abdominal pain upper [Recovered/Resolved]
  - Autonomic nervous system imbalance [None]
  - Anaemia [None]

NARRATIVE: CASE EVENT DATE: 20221230
